FAERS Safety Report 9350950 (Version 6)
Quarter: 2014Q1

REPORT INFORMATION
  Report Type: Report from Study
  Country: CA (occurrence: CA)
  Receive Date: 20130617
  Receipt Date: 20140131
  Transmission Date: 20141002
  Serious: Yes (Hospitalization, Other)
  Sender: FDA-Public Use
  Company Number: CA-JNJFOC-20130607893

PATIENT
  Age: 74 Year
  Sex: Male
  Weight: 85.28 kg

DRUGS (6)
  1. REMICADE [Suspect]
     Indication: RHEUMATOID ARTHRITIS
     Route: 042
     Dates: start: 20121002, end: 20130324
  2. METHOTREXATE [Concomitant]
     Indication: RHEUMATOID ARTHRITIS
     Route: 048
  3. FOLIC ACID [Concomitant]
     Indication: RHEUMATOID ARTHRITIS
     Route: 048
  4. PLAQUENIL [Concomitant]
     Indication: RHEUMATOID ARTHRITIS
     Route: 048
  5. STATEX [Concomitant]
     Dosage: EVERY 4-6 HOURS WHEN REQUIRED
     Route: 048
  6. ACETAMINOPHEN [Concomitant]
     Indication: RHEUMATOID ARTHRITIS
     Dosage: WHEN REQUIRED
     Route: 048

REACTIONS (3)
  - Coronary artery disease [Unknown]
  - Myocardial infarction [Recovered/Resolved]
  - Cellulitis [Recovered/Resolved]
